FAERS Safety Report 5775537-3 (Version None)
Quarter: 2008Q2

REPORT INFORMATION
  Report Type: 
  Country: None (occurrence: None)
  Receive Date: 20080601
  Receipt Date: 20080122
  Transmission Date: 20081010
  Serious: No
  Sender: FDA-Public Use
  Company Number: US200711005578

PATIENT
  Age: 52 Year
  Sex: Female
  Weight: 71.7 kg

DRUGS (7)
  1. BYETTA [Suspect]
     Indication: TYPE 2 DIABETES MELLITUS
     Dosage: 5 UG, 2/D, SUBCUTANEOUS
     Route: 058
     Dates: start: 20071121, end: 20071121
  2. METFORMIN HCL [Concomitant]
  3. PRANDIN (DEFLAZACORT) [Concomitant]
  4. NEXIUM [Concomitant]
  5. COZAAR [Concomitant]
  6. ATENOLOL [Concomitant]
  7. VYTORIN (EZETIMIBE, SMIVASTATIN) [Concomitant]

REACTIONS (2)
  - DYSPEPSIA [None]
  - PALPITATIONS [None]
